FAERS Safety Report 16009840 (Version 1)
Quarter: 2019Q1

REPORT INFORMATION
  Report Type: Spontaneous
  Country: US (occurrence: US)
  Receive Date: 20190227
  Receipt Date: 20190227
  Transmission Date: 20190418
  Serious: No
  Sender: FDA-Public Use
  Company Number: US-AUROBINDO-AUR-APU-2018-045371

PATIENT
  Sex: Female

DRUGS (2)
  1. VALSARTAN. [Suspect]
     Active Substance: VALSARTAN
     Indication: BLOOD PRESSURE ABNORMAL
     Dosage: 160 MILLIGRAM
     Route: 048
     Dates: start: 20180702
  2. VALSARTAN TABLETS [Suspect]
     Active Substance: VALSARTAN
     Indication: BLOOD PRESSURE ABNORMAL
     Dosage: 160 MILLIGRAM, ONCE A DAY
     Route: 048
     Dates: end: 2018

REACTIONS (1)
  - Hallucination [Not Recovered/Not Resolved]
